FAERS Safety Report 6452987-3 (Version None)
Quarter: 2009Q4

REPORT INFORMATION
  Report Type: 
  Country: None (occurrence: None)
  Receive Date: 20091123
  Receipt Date: 20091123
  Transmission Date: 20100525
  Serious: Yes (Life-Threatening, Hospitalization, Disabling)
  Sender: FDA-Public Use
  Company Number: None

PATIENT
  Sex: Female
  Weight: 70.3075 kg

DRUGS (1)
  1. AMBIEN [Suspect]
     Indication: INSOMNIA
     Dosage: TAKE ONE AT BEDTIME
     Dates: start: 20090919

REACTIONS (4)
  - ECONOMIC PROBLEM [None]
  - FALL [None]
  - LIMB DISCOMFORT [None]
  - SOMNAMBULISM [None]
